FAERS Safety Report 15614568 (Version 1)
Quarter: 2018Q4

REPORT INFORMATION
  Report Type: Spontaneous
  Country: US (occurrence: US)
  Receive Date: 20181113
  Receipt Date: 20181113
  Transmission Date: 20190205
  Serious: Yes (Hospitalization)
  Sender: FDA-Public Use
  Company Number: US-PRESTIGE BRANDS -2058817

PATIENT
  Sex: Female

DRUGS (1)
  1. FLEET (GLYCERIN) [Suspect]
     Active Substance: GLYCERIN
     Indication: CONSTIPATION
     Route: 054

REACTIONS (2)
  - Hypersensitivity [Recovered/Resolved]
  - Intentional product misuse [None]
